FAERS Safety Report 11746708 (Version 1)
Quarter: 2015Q4

REPORT INFORMATION
  Report Type: Spontaneous
  Country: US (occurrence: None)
  Receive Date: 20151116
  Receipt Date: 20151116
  Transmission Date: 20160304
  Serious: Yes (Hospitalization)
  Sender: FDA-Public Use
  Company Number: None

PATIENT
  Age: 67 Year
  Sex: Male
  Weight: 78.47 kg

DRUGS (2)
  1. HYTRIN [Suspect]
     Active Substance: TERAZOSIN HYDROCHLORIDE
     Indication: PROSTATIC DISORDER
     Dosage: START DATE: 11/04/2016?
     Route: 048
  2. HYTRIN [Suspect]
     Active Substance: TERAZOSIN HYDROCHLORIDE
     Indication: BLADDER DISORDER
     Dosage: START DATE: 11/04/2016?
     Route: 048

REACTIONS (3)
  - Dizziness [None]
  - Loss of consciousness [None]
  - Blood pressure decreased [None]

NARRATIVE: CASE EVENT DATE: 20151112
